FAERS Safety Report 8805817 (Version 1)
Quarter: 2012Q4

REPORT INFORMATION
  Report Type: 
  Country: CO (occurrence: CO)
  Receive Date: 20120925
  Receipt Date: 20120925
  Transmission Date: 20130627
  Serious: Yes (Hospitalization)
  Sender: FDA-Public Use
  Company Number: CO-MERCK-1209COL007003

PATIENT
  Age: 52 Year
  Sex: Male

DRUGS (2)
  1. PEG-INTRON [Suspect]
     Dosage: total daily dose unknown
     Dates: start: 20120608
  2. REBETOL [Suspect]
     Dosage: 800 mg, qd
     Dates: start: 20120608

REACTIONS (2)
  - Abdominal pain [Not Recovered/Not Resolved]
  - Hyperthermia [Unknown]
